FAERS Safety Report 9669362 (Version 1)
Quarter: 2013Q4

REPORT INFORMATION
  Report Type: Spontaneous
  Country: FR (occurrence: None)
  Receive Date: 20131101
  Receipt Date: 20131101
  Transmission Date: 20140711
  Serious: Yes (Hospitalization)
  Sender: FDA-Public Use
  Company Number: FR-013408

PATIENT
  Age: 72 Year
  Sex: 0
  Weight: 75 kg

DRUGS (1)
  1. FIRMAGON [Suspect]
     Dates: start: 20121119, end: 20121119

REACTIONS (1)
  - Injection site abscess [None]
